FAERS Safety Report 10712238 (Version 1)
Quarter: 2015Q1

REPORT INFORMATION
  Report Type: Spontaneous
  Country: US (occurrence: US)
  Receive Date: 20150114
  Receipt Date: 20150114
  Transmission Date: 20150721
  Serious: Yes (Death, Other)
  Sender: FDA-Public Use
  Company Number: US-GLAXOSMITHKLINE-US2015GSK002794

PATIENT
  Age: 55 Year
  Sex: Female

DRUGS (5)
  1. BUPROPION [Suspect]
     Active Substance: BUPROPION
  2. METOPROLOL [Suspect]
     Active Substance: METOPROLOL
  3. OXYCODONE [Suspect]
     Active Substance: OXYCODONE
  4. TRAZODONE [Suspect]
     Active Substance: TRAZODONE HYDROCHLORIDE
  5. FENTANYL. [Suspect]
     Active Substance: FENTANYL

REACTIONS (2)
  - Drug abuse [Fatal]
  - Death [Fatal]
